FAERS Safety Report 11211873 (Version 1)
Quarter: 2015Q2

REPORT INFORMATION
  Report Type: Spontaneous
  Country: US (occurrence: US)
  Receive Date: 20150623
  Receipt Date: 20150623
  Transmission Date: 20150821
  Serious: Yes (Other)
  Sender: FDA-Public Use
  Company Number: US-MYLANLABS-2015M1020311

PATIENT

DRUGS (6)
  1. OXALIPLATIN. [Suspect]
     Active Substance: OXALIPLATIN
     Indication: PANCREATIC CARCINOMA METASTATIC
     Dosage: 85 MG/M2 INFUSION OVER 2 HOURS
     Route: 065
     Dates: start: 201311
  2. IRINOTECAN [Suspect]
     Active Substance: IRINOTECAN
     Indication: PANCREATIC CARCINOMA METASTATIC
     Dosage: INFUSION 180 MG/M2
     Route: 065
     Dates: start: 201311
  3. FOLINIC ACID [Concomitant]
     Active Substance: LEUCOVORIN
     Indication: PANCREATIC CARCINOMA METASTATIC
     Dosage: 400 MG/M2
     Route: 042
     Dates: start: 201311
  4. DEXAMETHASONE. [Concomitant]
     Active Substance: DEXAMETHASONE
     Indication: PREMEDICATION
     Dosage: 10MG
     Route: 065
     Dates: start: 201311
  5. ATROPINE [Concomitant]
     Active Substance: ATROPINE
     Dosage: VIA IVP
     Route: 042
     Dates: start: 201311
  6. ONDANSETRON [Concomitant]
     Active Substance: ONDANSETRON
     Indication: PREMEDICATION
     Dosage: 12MG
     Route: 042
     Dates: start: 201311

REACTIONS (3)
  - Aphasia [Recovered/Resolved]
  - Asthenia [Recovered/Resolved]
  - Paralysis [Recovered/Resolved]
